FAERS Safety Report 5503874-6 (Version None)
Quarter: 2007Q4

REPORT INFORMATION
  Report Type: 
  Country: None (occurrence: None)
  Receive Date: 20071101
  Receipt Date: 20071031
  Transmission Date: 20080405
  Serious: Yes (Other)
  Sender: FDA-Public Use
  Company Number: US-BAYER-200616048BWH

PATIENT

DRUGS (1)
  1. SORAFENIB [Suspect]
     Indication: SARCOMA
     Route: 048

REACTIONS (1)
  - KERATOACANTHOMA [None]
